FAERS Safety Report 9563876 (Version 3)
Quarter: 2014Q1

REPORT INFORMATION
  Report Type: Report from Study
  Country: FR (occurrence: FR)
  Receive Date: 20130927
  Receipt Date: 20140115
  Transmission Date: 20141002
  Serious: Yes (Other)
  Sender: FDA-Public Use
  Company Number: FR-ROCHE-1276958

PATIENT
  Age: 73 Year
  Sex: Female
  Weight: 59.2 kg

DRUGS (12)
  1. TRASTUZUMAB [Suspect]
     Indication: HER-2 POSITIVE BREAST CANCER
     Dosage: LOADING DOSE
     Route: 042
     Dates: start: 20130110, end: 20130110
  2. TRASTUZUMAB [Suspect]
     Dosage: DATE OF LAST DOSE PRIOR TO SAE ONSET: 17/JUL/2013 (MAINTENANCE DOSE). PERMANENTLY DISCONTINUED.
     Route: 042
     Dates: end: 20130717
  3. AMIODARONE [Concomitant]
     Route: 065
     Dates: start: 20120717
  4. FLECAINE [Concomitant]
     Route: 065
     Dates: start: 20120717
  5. GINKGO BILOBA [Concomitant]
     Route: 065
     Dates: start: 2008
  6. TITANOREINE (FRANCE) [Concomitant]
     Route: 065
     Dates: start: 20130406
  7. BACTROBAN [Concomitant]
     Route: 065
     Dates: start: 20130503
  8. ONYSTER [Concomitant]
     Route: 065
     Dates: start: 20130503, end: 20130718
  9. VEINAMITOL [Concomitant]
     Route: 065
     Dates: start: 20130606
  10. CHARBON DE BELLOC [Concomitant]
     Route: 065
     Dates: start: 20130606, end: 20130627
  11. PERTUZUMAB [Suspect]
     Indication: HER-2 POSITIVE BREAST CANCER
     Dosage: DATE OF LAST DOSE PRIOR TO SAE ONSET: 17/JUL/2013
     Route: 042
     Dates: start: 20130110, end: 20130110
  12. PERTUZUMAB [Suspect]
     Dosage: DATE OF LAST DOSE PRIOR TO SAE ONSET: 17/JUL/2013
     Route: 042
     Dates: end: 20130912

REACTIONS (1)
  - Lung consolidation [Recovering/Resolving]
